FAERS Safety Report 8880982 (Version 5)
Quarter: 2014Q3

REPORT INFORMATION
  Report Type: Spontaneous
  Country: US (occurrence: US)
  Receive Date: 20121101
  Receipt Date: 20140815
  Transmission Date: 20150326
  Serious: Yes (Other)
  Sender: FDA-Public Use
  Company Number: US-PFIZER INC-2012267986

PATIENT
  Age: 6 Decade
  Sex: Female

DRUGS (4)
  1. LYRICA [Suspect]
     Active Substance: PREGABALIN
     Indication: FIBROMYALGIA
     Dosage: 50 MG MORNING, 75 MG AFTERNOON AND 75 MG EVENING
  2. LYRICA [Suspect]
     Active Substance: PREGABALIN
     Dosage: 2 - 75 MG MORNING AND 2 - 75 MG EVENING
  3. PRILOSEC [Concomitant]
     Active Substance: OMEPRAZOLE MAGNESIUM
     Indication: DYSPEPSIA
  4. LYRICA [Suspect]
     Active Substance: PREGABALIN
     Dosage: 50 MG, 2X/DAY
     Route: 048

REACTIONS (13)
  - Systemic lupus erythematosus [Unknown]
  - Swollen tongue [Unknown]
  - Drug hypersensitivity [Unknown]
  - Discomfort [Unknown]
  - Feeling abnormal [Unknown]
  - Mood altered [Unknown]
  - Fatigue [Unknown]
  - Dysphagia [Unknown]
  - Palpitations [Unknown]
  - Psychomotor hyperactivity [Unknown]
  - Arthralgia [Unknown]
  - Chills [Unknown]
  - Migraine [Unknown]

NARRATIVE: CASE EVENT DATE: 20121023
